FAERS Safety Report 19879702 (Version 3)
Quarter: 2022Q1

REPORT INFORMATION
  Report Type: Spontaneous
  Country: US (occurrence: US)
  Receive Date: 20210924
  Receipt Date: 20220222
  Transmission Date: 20220423
  Serious: No
  Sender: FDA-Public Use
  Company Number: US-GW PHARMA-202109USGW04570

PATIENT
  Sex: Male

DRUGS (1)
  1. EPIDIOLEX [Suspect]
     Active Substance: CANNABIDIOL
     Indication: Product used for unknown indication
     Dosage: UNK
     Route: 048

REACTIONS (4)
  - Blood bilirubin increased [Recovered/Resolved]
  - Liver function test increased [Recovered/Resolved]
  - Abdominal discomfort [Recovered/Resolved]
  - Lethargy [Recovered/Resolved]
